FAERS Safety Report 17861933 (Version 1)
Quarter: 2020Q2

REPORT INFORMATION
  Report Type: Report from Study
  Country: JP (occurrence: JP)
  Receive Date: 20200604
  Receipt Date: 20200604
  Transmission Date: 20200714
  Serious: Yes (Hospitalization, Disabling, Other)
  Sender: FDA-Public Use
  Company Number: JP-PORTOLA PHARMACEUTICALS, INC.-2019JP000026

PATIENT
  Age: 87 Year
  Sex: Female

DRUGS (16)
  1. ANDEXXA [Suspect]
     Active Substance: ANDEXANET ALFA
     Indication: PRODUCT USED FOR UNKNOWN INDICATION
     Dosage: 960 MG, SINGLE INFUSION
     Route: 042
     Dates: start: 20190315, end: 20190315
  2. MAGNESIUM OXIDE. [Concomitant]
     Active Substance: MAGNESIUM OXIDE
     Dosage: TABLET, UNKNOWN
  3. AMLODIPIN                          /00972401/ [Concomitant]
     Active Substance: AMLODIPINE BESYLATE
     Dosage: TABLET, UNKNOWN
  4. DOPAMINE HYDROCHLORIDE. [Concomitant]
     Active Substance: DOPAMINE HYDROCHLORIDE
     Dosage: INJECTION
     Dates: start: 20190315, end: 20190315
  5. SOLACET D [Concomitant]
     Dosage: UNK
     Dates: start: 20190315
  6. LIXIANA OD [Concomitant]
     Active Substance: EDOXABAN TOSYLATE
     Indication: ATRIAL FIBRILLATION
     Dosage: 30 MG, UNK
     Route: 050
     Dates: start: 20190316
  7. MAINTATE [Concomitant]
     Active Substance: BISOPROLOL FUMARATE
     Dosage: TABLET, UNKNOWN
     Route: 048
  8. BETAHISTINE MESILATE [Concomitant]
     Active Substance: BETAHISTINE MESILATE
     Dosage: TABLET, UNKNOWN
     Route: 048
  9. CELECOX [Concomitant]
     Active Substance: CELECOXIB
     Dosage: TABLET, UNKNOWN
  10. OMEPRAZOLE. [Concomitant]
     Active Substance: OMEPRAZOLE
     Dosage: TABLET, UNKNOWN
  11. EDIROL [Concomitant]
     Active Substance: ELDECALCITOL
     Dosage: UNKNOWN
  12. MOHRUS L [Concomitant]
     Active Substance: KETOPROFEN
     Dosage: UNKNOWN
  13. PRIMPERAN [Concomitant]
     Active Substance: METOCLOPRAMIDE HYDROCHLORIDE
     Dosage: INJECTION
     Dates: start: 20190315, end: 20190315
  14. ANDEXXA [Suspect]
     Active Substance: ANDEXANET ALFA
     Indication: PROCOAGULANT THERAPY
     Dosage: 800 MG, SINGLE BOLUS
     Route: 040
     Dates: start: 20190315, end: 20190315
  15. LIXIANA OD [Concomitant]
     Active Substance: EDOXABAN TOSYLATE
     Indication: SINUS NODE DYSFUNCTION
     Dosage: 30 MG, UNK
     Route: 048
     Dates: start: 201712, end: 201903
  16. PITAVASTATIN CALCIUM [Concomitant]
     Active Substance: PITAVASTATIN CALCIUM
     Dosage: TABLET, UNKNOWN

REACTIONS (1)
  - Cerebral infarction [Not Recovered/Not Resolved]

NARRATIVE: CASE EVENT DATE: 20190316
